FAERS Safety Report 16434328 (Version 2)
Quarter: 2019Q3

REPORT INFORMATION
  Report Type: Spontaneous
  Country: US (occurrence: US)
  Receive Date: 20190614
  Receipt Date: 20190801
  Transmission Date: 20191004
  Serious: No
  Sender: FDA-Public Use
  Company Number: US-JNJFOC-20190527189

PATIENT
  Age: 50 Year
  Sex: Male
  Weight: 81.72 kg

DRUGS (1)
  1. TREMFYA [Suspect]
     Active Substance: GUSELKUMAB
     Indication: PSORIATIC ARTHROPATHY
     Route: 058
     Dates: start: 201903

REACTIONS (5)
  - Product dose omission [Not Recovered/Not Resolved]
  - Off label use [Unknown]
  - Device malfunction [Not Recovered/Not Resolved]
  - Accidental exposure to product [Recovered/Resolved]
  - Product use in unapproved indication [Unknown]

NARRATIVE: CASE EVENT DATE: 20190518
